FAERS Safety Report 18840611 (Version 1)
Quarter: 2021Q1

REPORT INFORMATION
  Report Type: Other
  Country: US (occurrence: US)
  Receive Date: 20210203
  Receipt Date: 20210203
  Transmission Date: 20210419
  Serious: Yes (Death)
  Sender: FDA-Public Use
  Company Number: US-ROCHE-2006788

PATIENT
  Sex: Male

DRUGS (3)
  1. ZELBORAF [Suspect]
     Active Substance: VEMURAFENIB
     Indication: HAIRY CELL LEUKAEMIA
     Dosage: TAKE 4 TABLET(S) BY MOUTH EVERY 12 HOURS
     Route: 048
  2. ZELBORAF [Suspect]
     Active Substance: VEMURAFENIB
     Indication: REMISSION NOT ACHIEVED
  3. ZELBORAF [Suspect]
     Active Substance: VEMURAFENIB
     Indication: NON-HODGKIN^S LYMPHOMA
     Route: 065
     Dates: start: 20150925

REACTIONS (3)
  - Death [Fatal]
  - Off label use [Unknown]
  - Intentional product use issue [Unknown]
